FAERS Safety Report 4894666-X (Version None)
Quarter: 2006Q1

REPORT INFORMATION
  Report Type: 
  Country: None (occurrence: None)
  Receive Date: 20060127
  Receipt Date: 20050503
  Transmission Date: 20060701
  Serious: Yes (Hospitalization)
  Sender: FDA-Public Use
  Company Number: US-MERCK-0505USA00502

PATIENT
  Age: 57 Year
  Sex: Male
  Weight: 107 kg

DRUGS (1)
  1. VIOXX [Suspect]
     Indication: BACK INJURY
     Route: 048
     Dates: start: 20030801, end: 20040501

REACTIONS (8)
  - ACCELERATED HYPERTENSION [None]
  - CORONARY ARTERY DISEASE [None]
  - CORONARY ARTERY OCCLUSION [None]
  - CORONARY ARTERY STENOSIS [None]
  - CORONARY ARTERY THROMBOSIS [None]
  - DIABETES MELLITUS [None]
  - HYPERLIPIDAEMIA [None]
  - MYOCARDIAL INFARCTION [None]
